FAERS Safety Report 26201169 (Version 1)
Quarter: 2025Q4

REPORT INFORMATION
  Report Type: Spontaneous
  Country: US (occurrence: US)
  Receive Date: 20251226
  Receipt Date: 20251226
  Transmission Date: 20260118
  Serious: No
  Sender: ALKEM
  Company Number: None

PATIENT
  Age: 41 Year
  Sex: Female

DRUGS (2)
  1. SILDENAFIL [Suspect]
     Active Substance: SILDENAFIL
     Indication: Colitis ischaemic
     Dosage: 25 MILLIGRAM, QD
     Route: 065
  2. SILDENAFIL [Suspect]
     Active Substance: SILDENAFIL
     Dosage: 12.5 MILLIGRAM (RECHALLENGE DOSE)
     Route: 065

REACTIONS (2)
  - Hypotension [Recovering/Resolving]
  - Off label use [Unknown]
